FAERS Safety Report 10201278 (Version 1)
Quarter: 2014Q2

REPORT INFORMATION
  Report Type: Spontaneous
  Country: US (occurrence: US)
  Receive Date: 20140528
  Receipt Date: 20140528
  Transmission Date: 20141212
  Serious: No
  Sender: FDA-Public Use
  Company Number: US-ASTRAZENECA-2014SE34383

PATIENT
  Age: 73 Year
  Sex: Male

DRUGS (4)
  1. CRESTOR [Suspect]
     Route: 048
  2. CRESTOR [Suspect]
     Route: 048
  3. PRAVASTATIN [Suspect]
     Route: 065
  4. LIPITOR [Concomitant]

REACTIONS (5)
  - Neuralgia [Recovered/Resolved]
  - Myalgia [Recovered/Resolved]
  - Pain in extremity [Recovered/Resolved]
  - Blood cholesterol increased [Not Recovered/Not Resolved]
  - Intentional product misuse [Unknown]
